FAERS Safety Report 14604753 (Version 5)
Quarter: 2018Q4

REPORT INFORMATION
  Report Type: Report from Study
  Country: JP (occurrence: JP)
  Receive Date: 20180306
  Receipt Date: 20181105
  Transmission Date: 20190204
  Serious: Yes (Disabling, Other)
  Sender: FDA-Public Use
  Company Number: JP-IPSEN BIOPHARMACEUTICALS, INC.-2014-6294

PATIENT
  Age: 67 Year
  Sex: Female
  Weight: 52.1 kg

DRUGS (7)
  1. PARLODEL [Concomitant]
     Active Substance: BROMOCRIPTINE MESYLATE
     Indication: ACROMEGALY
     Route: 048
     Dates: start: 2007
  2. SOMATULINE 90MG [Suspect]
     Active Substance: LANREOTIDE ACETATE
     Indication: ACROMEGALY
     Dosage: 90 MG
     Route: 058
     Dates: start: 20140411, end: 20150303
  3. ACTOS [Concomitant]
     Active Substance: PIOGLITAZONE HYDROCHLORIDE
     Indication: TYPE 2 DIABETES MELLITUS
     Route: 048
     Dates: start: 2007, end: 20151023
  4. SOMATULINE 90MG [Suspect]
     Active Substance: LANREOTIDE ACETATE
     Dosage: 120 MG
     Route: 058
     Dates: start: 20150406, end: 20160715
  5. GLACTIV [Concomitant]
     Active Substance: SITAGLIPTIN
     Route: 048
     Dates: start: 20140717
  6. EUGLUCON [Concomitant]
     Active Substance: GLYBURIDE
     Route: 048
     Dates: end: 20140904
  7. GLACTIV [Concomitant]
     Active Substance: SITAGLIPTIN
     Indication: TYPE 2 DIABETES MELLITUS
     Route: 048
     Dates: start: 201301, end: 20140716

REACTIONS (5)
  - Diabetes mellitus [Recovering/Resolving]
  - Ligament sprain [Not Recovered/Not Resolved]
  - Thyroid disorder [Recovering/Resolving]
  - Spinal compression fracture [Not Recovered/Not Resolved]
  - Fall [Not Recovered/Not Resolved]

NARRATIVE: CASE EVENT DATE: 20140509
